FAERS Safety Report 7952277-3 (Version None)
Quarter: 2011Q4

REPORT INFORMATION
  Report Type: 
  Country: None (occurrence: None)
  Receive Date: 20111201
  Receipt Date: 20111121
  Transmission Date: 20120403
  Serious: No
  Sender: FDA-Public Use
  Company Number: US-B.I. PHARMACEUTICALS,INC./RIDGEFIELD-2011-BP-26695BP

PATIENT
  Age: 76 Year
  Sex: Female

DRUGS (16)
  1. ALBUTEROL [Concomitant]
     Indication: ASTHMA
  2. PATANOL [Concomitant]
     Indication: EYE ALLERGY
  3. METOPROLOL [Concomitant]
     Indication: HYPERTENSION
     Dosage: 100 MG
     Route: 048
  4. ASMANEX TWISTHALER [Concomitant]
     Indication: CHRONIC OBSTRUCTIVE PULMONARY DISEASE
     Route: 055
  5. CALCIUM [Concomitant]
     Indication: SUPPLEMENTATION THERAPY
     Dosage: 1200 MG
  6. PRADAXA [Suspect]
     Indication: ATRIAL FIBRILLATION
     Dosage: 300 MG
     Route: 048
     Dates: start: 20110201
  7. VITAMIN D [Concomitant]
     Indication: SUPPLEMENTATION THERAPY
  8. ACETAMINOPHEN [Concomitant]
     Indication: ARTHRITIS
     Dosage: 500 MG
     Route: 048
  9. POTASSIUM ACETATE [Concomitant]
     Indication: BLOOD POTASSIUM DECREASED
     Dosage: 40 MG
     Route: 048
  10. DILTIAZEM HCL [Concomitant]
     Indication: ATRIAL FIBRILLATION
     Dosage: 180 MG
     Route: 048
  11. NITROGLYCERIN [Concomitant]
     Indication: CHEST PAIN
  12. TRAMADOL HCL [Concomitant]
     Indication: PAIN
  13. LASIX [Concomitant]
     Indication: CARDIAC FAILURE CONGESTIVE
     Route: 048
  14. SPIRIVA [Concomitant]
     Indication: CHRONIC OBSTRUCTIVE PULMONARY DISEASE
     Dosage: 18 MCG
     Route: 055
  15. LEVOTHYROXINE SODIUM [Concomitant]
     Indication: HYPOTHYROIDISM
     Dosage: 75 MCG
     Route: 048
  16. DIGOXIN [Concomitant]
     Indication: HYPERTENSION
     Dosage: 125 MG
     Route: 048

REACTIONS (4)
  - TRICHORRHEXIS [None]
  - ALOPECIA [None]
  - DYSPEPSIA [None]
  - HAIR TEXTURE ABNORMAL [None]
